FAERS Safety Report 17099960 (Version 1)
Quarter: 2019Q4

REPORT INFORMATION
  Report Type: Spontaneous
  Country: FR (occurrence: FR)
  Receive Date: 20191202
  Receipt Date: 20191202
  Transmission Date: 20200122
  Serious: Yes (Hospitalization)
  Sender: FDA-Public Use
  Company Number: FR-MYLANLABS-2019M1115594

PATIENT
  Age: 69 Year
  Sex: Male

DRUGS (8)
  1. RIFAMPICINE [Suspect]
     Active Substance: RIFAMPIN
     Indication: INTERVERTEBRAL DISCITIS
     Dosage: NON RENSEIGN?E
     Route: 048
     Dates: start: 20190613, end: 20190614
  2. OFLOXACINE [Suspect]
     Active Substance: OFLOXACIN
     Indication: INTERVERTEBRAL DISCITIS
     Dosage: NON RENSEIGN?E
     Route: 048
     Dates: start: 20190614, end: 20190614
  3. OLUMIANT [Concomitant]
     Active Substance: BARICITINIB
     Dosage: UNK
     Route: 065
  4. PREDNISOLONE. [Concomitant]
     Active Substance: PREDNISOLONE
     Dosage: UNK
     Route: 065
  5. GENTAMICINE                        /00047101/ [Suspect]
     Active Substance: GENTAMICIN
     Indication: INTERVERTEBRAL DISCITIS
     Dosage: NON RENSEIGN?E
     Route: 042
     Dates: start: 20190609, end: 20190612
  6. KARDEGIC [Concomitant]
     Active Substance: ASPIRIN DL-LYSINE
     Dosage: UNK
     Route: 065
  7. LOVENOX [Concomitant]
     Active Substance: ENOXAPARIN SODIUM
     Dosage: UNK
     Route: 065
  8. OXACILLIN [Suspect]
     Active Substance: OXACILLIN SODIUM
     Indication: INTERVERTEBRAL DISCITIS
     Dosage: UNK
     Route: 042
     Dates: start: 20190609, end: 20190612

REACTIONS (1)
  - Purpura [Recovered/Resolved]

NARRATIVE: CASE EVENT DATE: 20190614
